FAERS Safety Report 7029490-5 (Version None)
Quarter: 2010Q4

REPORT INFORMATION
  Report Type: 
  Country: None (occurrence: None)
  Receive Date: 20101005
  Receipt Date: 20100927
  Transmission Date: 20110411
  Serious: Yes (Other)
  Sender: FDA-Public Use
  Company Number: US-AMGEN-KDL441355

PATIENT
  Sex: Female

DRUGS (2)
  1. ENBREL [Suspect]
     Indication: RHEUMATOID ARTHRITIS
     Route: 058
     Dates: start: 20070305
  2. METHOTREXATE [Concomitant]
     Dates: end: 20070401

REACTIONS (9)
  - BLOOD PRESSURE ABNORMAL [None]
  - GASTROINTESTINAL INFECTION [None]
  - HAEMATOCRIT ABNORMAL [None]
  - HEADACHE [None]
  - LIVER INJURY [None]
  - NEPHROLITHIASIS [None]
  - PLATELET COUNT ABNORMAL [None]
  - RED BLOOD CELL COUNT ABNORMAL [None]
  - WHITE BLOOD CELL COUNT ABNORMAL [None]
